FAERS Safety Report 8163249-0 (Version None)
Quarter: 2012Q1

REPORT INFORMATION
  Report Type: 
  Country: None (occurrence: None)
  Receive Date: 20120224
  Receipt Date: 20110728
  Transmission Date: 20120608
  Serious: No
  Sender: FDA-Public Use
  Company Number: US-PFIZER INC-K201100900

PATIENT
  Sex: Female
  Weight: 55.329 kg

DRUGS (6)
  1. FLECTOR [Suspect]
     Indication: BACK PAIN
     Dosage: UNK PATCH, 12H QD
     Route: 061
     Dates: start: 20110201, end: 20110609
  2. FLECTOR [Suspect]
     Dosage: UNK PATCH, 12H QD
     Route: 061
     Dates: start: 20110711, end: 20110720
  3. LIDODERM [Suspect]
     Indication: BACK PAIN
     Dosage: UNK PATCH, 12H QD
     Route: 061
     Dates: start: 20110201, end: 20110609
  4. RELAFEN [Suspect]
     Dosage: UNK
     Dates: start: 20110101, end: 20110101
  5. NORTRIPTYLINE [Concomitant]
     Indication: SLEEP DISORDER
     Dosage: 50 MG, 1X/DAY
     Route: 048
  6. NORVASC [Concomitant]
     Indication: BLOOD PRESSURE
     Dosage: 2.5 MG, 2X/DAY
     Route: 048

REACTIONS (11)
  - ABDOMINAL DISCOMFORT [None]
  - DRUG HYPERSENSITIVITY [None]
  - HAEMATOMA [None]
  - SKIN ULCER [None]
  - DECUBITUS ULCER [None]
  - SKIN DISORDER [None]
  - PAIN [None]
  - SWELLING [None]
  - CONTUSION [None]
  - BLISTER [None]
  - PARAESTHESIA [None]
